FAERS Safety Report 4754479-6 (Version None)
Quarter: 2005Q3

REPORT INFORMATION
  Report Type: 
  Country: None (occurrence: None)
  Receive Date: 20050829
  Receipt Date: 20050304
  Transmission Date: 20060218
  Serious: No
  Sender: FDA-Public Use
  Company Number: US-GLAXOSMITHKLINE-A0548364A

PATIENT
  Age: 49 Year
  Sex: Female

DRUGS (4)
  1. ZOVIRAX [Suspect]
     Dosage: 400MG TWICE PER DAY
     Route: 048
  2. VALTREX [Suspect]
     Dosage: 1000MG PER DAY
     Route: 048
     Dates: start: 20041101
  3. ALLEGRA [Concomitant]
  4. AMBIEN [Concomitant]

REACTIONS (6)
  - DRUG INEFFECTIVE [None]
  - DRY EYE [None]
  - DYSGEUSIA [None]
  - EPISTAXIS [None]
  - HERPES VIRUS INFECTION [None]
  - MUCOSAL DRYNESS [None]
